FAERS Safety Report 17598681 (Version 1)
Quarter: 2020Q1

REPORT INFORMATION
  Report Type: Spontaneous
  Country: JP (occurrence: JP)
  Receive Date: 20200330
  Receipt Date: 20200330
  Transmission Date: 20200409
  Serious: Yes (Other)
  Sender: FDA-Public Use
  Company Number: JP-PFIZER INC-2020126902

PATIENT
  Age: 50 Year
  Sex: Female
  Weight: 90 kg

DRUGS (4)
  1. AMLODIN [Concomitant]
     Active Substance: AMLODIPINE BESYLATE
     Dosage: 1 TABLET, MORNING
  2. CEFTRIAXONE SODIUM. [Suspect]
     Active Substance: CEFTRIAXONE SODIUM
     Indication: MENINGITIS BACTERIAL
     Dosage: 1 G, 2X/DAY (2G DAILY IN 2 DIVIDED DOSES)
     Route: 042
  3. METGLUCO [Concomitant]
     Active Substance: METFORMIN HYDROCHLORIDE
     Dosage: 1 TABLET, EACH TIME MORNING AND EVENING
  4. PREMARIN [Concomitant]
     Active Substance: ESTROGENS, CONJUGATED
     Dosage: 2 TABLETS, MORNING

REACTIONS (1)
  - Cholecystitis [Recovered/Resolved]
